FAERS Safety Report 5140332-5 (Version None)
Quarter: 2006Q4

REPORT INFORMATION
  Report Type: 
  Country: None (occurrence: None)
  Receive Date: 20061025
  Receipt Date: 20061016
  Transmission Date: 20070319
  Serious: Yes (Other)
  Sender: FDA-Public Use
  Company Number: HQWYE136216OCT06

PATIENT
  Age: 75 Year
  Sex: Male
  Weight: 66.74 kg

DRUGS (10)
  1. CORDARONE [Suspect]
     Indication: ATRIAL FIBRILLATION
     Dosage: ORAL
     Route: 048
     Dates: start: 20020201, end: 20050101
  2. AMIODARONE HCL [Suspect]
     Dosage: SEE IMAGE
     Route: 048
     Dates: start: 20050101, end: 20060101
  3. AMIODARONE HCL [Suspect]
     Dosage: SEE IMAGE
     Route: 048
     Dates: start: 20060101, end: 20060101
  4. AMIODARONE HCL [Suspect]
     Dosage: SEE IMAGE
     Route: 048
     Dates: start: 20060101
  5. ASPIRIN [Concomitant]
  6. HYDROCHLOROTHIAZIDE [Concomitant]
  7. ALTACE [Concomitant]
  8. GLUCOSAMINE [Concomitant]
  9. FISH OIL, HYDROGENATED [Concomitant]
  10. MULTIVITAMINS (ASCORBIC ACID/ERGOCALCIFEROL/FOLIC ACID/NICOTINAMIDE/PA [Concomitant]

REACTIONS (7)
  - DEMYELINATING POLYNEUROPATHY [None]
  - DYSPNOEA [None]
  - FATIGUE [None]
  - HEPATOTOXICITY [None]
  - LIVER SCAN ABNORMAL [None]
  - PALPITATIONS [None]
  - VISION BLURRED [None]
